FAERS Safety Report 10130175 (Version 3)
Quarter: 2014Q2

REPORT INFORMATION
  Report Type: Spontaneous
  Country: US (occurrence: US)
  Receive Date: 20140428
  Receipt Date: 20140521
  Transmission Date: 20141212
  Serious: Yes (Other)
  Sender: FDA-Public Use
  Company Number: US-PFIZER INC-2014114147

PATIENT
  Age: 48 Year
  Sex: Female
  Weight: 91.61 kg

DRUGS (4)
  1. LYRICA [Suspect]
     Indication: NEURALGIA
     Dosage: 100 MG, 2X/DAY
     Dates: start: 201401, end: 2014
  2. LYRICA [Suspect]
     Indication: FIBROMYALGIA
     Dosage: 75 MG, 2X/DAY
     Dates: start: 2014, end: 2014
  3. LYRICA [Suspect]
     Dosage: 150 MG, 2X/DAY
     Dates: start: 2014, end: 20140415
  4. LYRICA [Suspect]
     Dosage: 100 MG, 2X/DAY
     Dates: start: 20140416

REACTIONS (5)
  - Weight increased [Unknown]
  - Local swelling [Recovering/Resolving]
  - Joint swelling [Unknown]
  - Weight decreased [Unknown]
  - Vision blurred [Unknown]
